FAERS Safety Report 4653904-9 (Version None)
Quarter: 2005Q2

REPORT INFORMATION
  Report Type: 
  Country: None (occurrence: None)
  Receive Date: 20050408
  Receipt Date: 20050301
  Transmission Date: 20051028
  Serious: No
  Sender: FDA-Public Use
  Company Number: 230033M05USA

PATIENT
  Sex: Female

DRUGS (5)
  1. REBIF [Suspect]
     Indication: MULTIPLE SCLEROSIS
  2. METFORMIN HCL [Concomitant]
  3. TOPIRAMATE [Concomitant]
  4. VENLAFAXINE HCL [Concomitant]
  5. PREDNISONE [Concomitant]

REACTIONS (1)
  - OEDEMA PERIPHERAL [None]
